FAERS Safety Report 16138173 (Version 2)
Quarter: 2020Q4

REPORT INFORMATION
  Report Type: Spontaneous
  Country: FR (occurrence: FR)
  Receive Date: 20190330
  Receipt Date: 20201229
  Transmission Date: 20210113
  Serious: Yes (Other)
  Sender: FDA-Public Use
  Company Number: FR-AUROBINDO-AUR-APL-2019-017109

PATIENT
  Age: 64 Year
  Sex: Male

DRUGS (4)
  1. TETRACAINE. [Concomitant]
     Active Substance: TETRACAINE
     Indication: ANAESTHESIA
     Dosage: UNK
     Route: 061
  2. PHENYLEPHRINE [Concomitant]
     Active Substance: PHENYLEPHRINE HYDROCHLORIDE
     Indication: MYDRIASIS
     Dosage: 2.5 PERCENT
     Route: 065
  3. TROPICAMIDE. [Concomitant]
     Active Substance: TROPICAMIDE
     Indication: MYDRIASIS
     Dosage: 1 PERCENT
     Route: 065
  4. CEFUROXIME. [Suspect]
     Active Substance: CEFUROXIME
     Indication: PRODUCT USED FOR UNKNOWN INDICATION
     Dosage: 0.1 MILLILITER

REACTIONS (7)
  - Chorioretinal folds [Recovered/Resolved]
  - Retinal oedema [Recovered/Resolved]
  - Retinal detachment [Recovered/Resolved]
  - Retinal disorder [Recovered/Resolved]
  - Retinal cyst [Recovered/Resolved]
  - Blindness [Recovered/Resolved]
  - Retinal toxicity [Recovered/Resolved]
